FAERS Safety Report 19541206 (Version 1)
Quarter: 2021Q3

REPORT INFORMATION
  Report Type: Spontaneous
  Country: IT (occurrence: IT)
  Receive Date: 20210713
  Receipt Date: 20210713
  Transmission Date: 20211014
  Serious: Yes (Other)
  Sender: FDA-Public Use
  Company Number: IT-GILEAD-2021-0540172

PATIENT
  Age: 82 Year
  Sex: Female
  Weight: 68 kg

DRUGS (2)
  1. VEKLURY [Suspect]
     Active Substance: REMDESIVIR
     Indication: COVID-19
     Dosage: 100 MG, QD
     Route: 042
     Dates: start: 20210623, end: 20210624
  2. NEBIVOLOL. [Concomitant]
     Active Substance: NEBIVOLOL

REACTIONS (1)
  - Atrioventricular block [Unknown]

NARRATIVE: CASE EVENT DATE: 20210624
